FAERS Safety Report 9231186 (Version 1)
Quarter: 2013Q1

REPORT INFORMATION
  Report Type: Spontaneous
  Country: US (occurrence: None)
  Receive Date: 20121031
  Receipt Date: 20121031
  Transmission Date: 20140127
  Serious: No
  Sender: FDA-Public Use
  Company Number: PHEH2012US015996

PATIENT
  Age: 47 Year
  Sex: Female
  Weight: 51.7 kg

DRUGS (9)
  1. GILENYA [Suspect]
     Route: 048
  2. TRIPLETAL (OXCARBAZEPINE) TABLET, 300MG [Concomitant]
  3. BACLOFEN (BACLOFEN) TABLWT 20 MG [Concomitant]
  4. WELLBUTRIN SR (BUPROPION)TABLET, 100MG [Concomitant]
  5. ZANAFLEX (TIZANIDINE HYDROCHLORIDE) [Concomitant]
  6. ZANAFLEX (TIZANIDINE HYDROCHLORIDE) [Concomitant]
  7. VITAMIN D (ERGOCALCIFEROL) [Concomitant]
  8. VITAMIN D (ERGOCALCIFEROL )CAPSULE, 1000 IU [Concomitant]
  9. MOTRIN IB (IBUPROFEN)TABLET , 200MG [Concomitant]

REACTIONS (3)
  - Throat tightness [None]
  - Rash [None]
  - Paraesthesia [None]
